FAERS Safety Report 8792900 (Version 2)
Quarter: 2012Q4

REPORT INFORMATION
  Report Type: 
  Country: JP (occurrence: JP)
  Receive Date: 20120918
  Receipt Date: 20121026
  Transmission Date: 20130627
  Serious: Yes (Hospitalization)
  Sender: FDA-Public Use
  Company Number: JP-AMGEN-JPNSP2012054425

PATIENT
  Age: 54 Year
  Sex: Male
  Weight: 77 kg

DRUGS (8)
  1. VECTIBIX [Suspect]
     Indication: RECTAL CANCER
     Dosage: 460 mg, q2wk
     Route: 042
     Dates: start: 20120510, end: 20120524
  2. VECTIBIX [Suspect]
     Dosage: 460 mg, q2wk
     Route: 041
     Dates: start: 20120621
  3. MINOMYCIN [Concomitant]
     Indication: SKIN DISORDER
     Dosage: 4 DF, UNK
     Route: 048
     Dates: start: 20120502
  4. PYDOXAL [Concomitant]
     Indication: SKIN DISORDER
     Dosage: 6 DF, UNK
     Route: 048
     Dates: start: 20120502
  5. ISOVORIN [Concomitant]
     Indication: RECTAL CANCER
     Dosage: 350 mg, q2wk
     Route: 042
     Dates: start: 200904
  6. TOPOTECIN [Concomitant]
     Indication: RECTAL CANCER
     Dosage: 200 mg, q2wk
     Route: 042
     Dates: start: 200904
  7. 5-FU [Concomitant]
     Indication: RECTAL CANCER
     Dosage: 5000 mg, q2wk
     Route: 042
     Dates: start: 200904
  8. KYTRIL [Concomitant]
     Dosage: 1 DF, UNK
     Route: 042
     Dates: start: 200904

REACTIONS (3)
  - Conjunctival hyperaemia [Unknown]
  - Pyrexia [Unknown]
  - Acne [Recovered/Resolved]
